FAERS Safety Report 10432551 (Version 1)
Quarter: 2014Q3

REPORT INFORMATION
  Report Type: Spontaneous
  Country: US (occurrence: None)
  Receive Date: 20140815
  Receipt Date: 20140815
  Transmission Date: 20150326
  Serious: No
  Sender: FDA-Public Use
  Company Number: A-NJ2014-100621

PATIENT
  Age: 52 Year
  Sex: Female

DRUGS (1)
  1. OPSUMIT [Suspect]
     Active Substance: MACITENTAN
     Indication: PULMONARY ARTERIAL HYPERTENSION
     Route: 048
     Dates: start: 20140531

REACTIONS (8)
  - Nasal congestion [None]
  - Myalgia [None]
  - Dizziness [None]
  - Chills [None]
  - Oedema peripheral [None]
  - Pain [None]
  - Dysphonia [None]
  - Throat irritation [None]

NARRATIVE: CASE EVENT DATE: 20140604
